FAERS Safety Report 25255929 (Version 1)
Quarter: 2025Q2

REPORT INFORMATION
  Report Type: Spontaneous
  Country: US (occurrence: US)
  Receive Date: 20250430
  Receipt Date: 20250430
  Transmission Date: 20250716
  Serious: Yes (Other)
  Sender: BLUEPRINT MEDICINES
  Company Number: US-Blueprint Medicines Corporation-2025-AER-00846

PATIENT
  Age: 53 Year
  Sex: Female

DRUGS (1)
  1. AYVAKIT [Suspect]
     Active Substance: AVAPRITINIB
     Indication: Mastocytoma
     Route: 065

REACTIONS (8)
  - Arrhythmia [Unknown]
  - Blood test abnormal [Unknown]
  - Blood glucose decreased [Unknown]
  - Hypotension [Unknown]
  - Menopause [Unknown]
  - Cognitive disorder [Unknown]
  - Depressed mood [Unknown]
  - Arthralgia [Unknown]
